FAERS Safety Report 20497191 (Version 1)
Quarter: 2022Q1

REPORT INFORMATION
  Report Type: Spontaneous
  Country: US (occurrence: US)
  Receive Date: 20220221
  Receipt Date: 20220221
  Transmission Date: 20220423
  Serious: Yes (Life-Threatening)
  Sender: FDA-Public Use
  Company Number: US-MLMSERVICE-20220207-3359846-1

PATIENT
  Age: 78 Year
  Sex: Male

DRUGS (4)
  1. NEOMYCIN AND POLYMYXIN B SULFATES AND DEXAMETHASONE [Suspect]
     Active Substance: DEXAMETHASONE\NEOMYCIN SULFATE\POLYMYXIN B SULFATE
     Indication: Conjunctivitis
     Route: 047
  2. FLUOROURACIL [Concomitant]
     Active Substance: FLUOROURACIL
     Indication: Ocular surface squamous neoplasia
     Dosage: BIWEEKLY CYCLE OF 4 TIMES A DAY FOR ONE WEEK FOLLOWED BY A ONE WEEK HOLIDAY
  3. FLUOROURACIL [Concomitant]
     Active Substance: FLUOROURACIL
     Dosage: STARTED ON AN ADDITIONAL BIWEEKLY CYCLE
  4. ARTIFICIAL TEARS [Concomitant]
     Active Substance: GLYCERIN\HYPROMELLOSES\POLYETHYLENE GLYCOL 400
     Indication: Conjunctivitis

REACTIONS (1)
  - Corneal epithelium defect [Recovered/Resolved]
